FAERS Safety Report 5931992-7 (Version None)
Quarter: 2008Q4

REPORT INFORMATION
  Report Type: 
  Country: None (occurrence: None)
  Receive Date: 20081027
  Receipt Date: 20081015
  Transmission Date: 20090506
  Serious: Yes (Hospitalization, Other)
  Sender: FDA-Public Use
  Company Number: AU-PFIZER INC-2008088569

PATIENT
  Age: 87 Year
  Sex: Female
  Weight: 68 kg

DRUGS (10)
  1. SERTRALINE [Suspect]
     Indication: DEPRESSION
     Dates: start: 20060902, end: 20061002
  2. AMLODIPINE [Concomitant]
  3. ACETYLSALICYLIC ACID SRT [Concomitant]
  4. ATENOLOL [Concomitant]
  5. ATORVASTATIN [Concomitant]
  6. COLOXYL WITH SENNA [Concomitant]
  7. ISOSORBIDE [Concomitant]
  8. OMEPRAZOLE [Concomitant]
  9. LEVOTHYROXINE SODIUM [Concomitant]
  10. CLOPIDOGREL [Concomitant]

REACTIONS (7)
  - GRAND MAL CONVULSION [None]
  - HEADACHE [None]
  - HYPONATRAEMIA [None]
  - INAPPROPRIATE ANTIDIURETIC HORMONE SECRETION [None]
  - SPEECH DISORDER [None]
  - VISION BLURRED [None]
  - VOMITING [None]
